FAERS Safety Report 20819777 (Version 1)
Quarter: 2022Q2

REPORT INFORMATION
  Report Type: Spontaneous
  Country: US (occurrence: US)
  Receive Date: 20220512
  Receipt Date: 20220512
  Transmission Date: 20220720
  Serious: Yes (Other)
  Sender: FDA-Public Use
  Company Number: US-BAYER-2022A064303

PATIENT
  Sex: Female

DRUGS (1)
  1. CLIMARA [Suspect]
     Active Substance: ESTRADIOL
     Route: 062

REACTIONS (10)
  - Amenorrhoea [None]
  - Abdominal distension [None]
  - Abdominal pain lower [None]
  - Uterine haemorrhage [None]
  - Breast pain [None]
  - Nipple pain [None]
  - Decreased appetite [None]
  - Fatigue [None]
  - Dizziness [None]
  - Uterine pain [None]
